FAERS Safety Report 7760411-3 (Version None)
Quarter: 2011Q3

REPORT INFORMATION
  Report Type: 
  Country: None (occurrence: None)
  Receive Date: 20110919
  Receipt Date: 20110915
  Transmission Date: 20111222
  Serious: Yes (Death, Hospitalization, Other)
  Sender: FDA-Public Use
  Company Number: PHEH2008US03999

PATIENT
  Sex: Male
  Weight: 93.6 kg

DRUGS (71)
  1. DOXYCYCLINE [Concomitant]
  2. DIAMOX SRC [Concomitant]
     Dosage: 500 MG, UNK
  3. ZOLOFT [Concomitant]
     Dosage: 50 MG, DAILY
     Route: 048
  4. ATIVAN [Concomitant]
  5. NYSTATIN [Concomitant]
  6. METOCLOPRAMIDE [Concomitant]
     Dosage: 10 MG/2 ML
  7. LIPITOR [Concomitant]
     Dosage: 40 MG, QD
     Route: 048
  8. FAMOTIDINE [Concomitant]
     Dosage: 20 MG, QD
     Route: 048
  9. ZITHROMAX [Concomitant]
  10. REGLAN [Concomitant]
  11. SENNA [Concomitant]
  12. LISINOPRIL [Concomitant]
     Dosage: 2.5 MG, QD
     Route: 048
  13. CHLORHEXIDINE DENTAL ^ACO^ [Concomitant]
     Dosage: 0.12 %, TID
     Route: 049
  14. TEMAZEPAM [Concomitant]
     Dosage: 30 MG, BID
     Route: 048
  15. K-TAB [Concomitant]
  16. POTASSIUM CHLORIDE [Concomitant]
  17. FOLIC ACID [Concomitant]
  18. TRENTAL ^ALBERT-ROUSSEL^ [Concomitant]
  19. PLENDIL [Concomitant]
     Dosage: 5 MG, QD
     Route: 048
  20. NORVASC [Concomitant]
  21. ZOLOFT [Concomitant]
  22. SULFAMETHOXAZOLE [Concomitant]
     Route: 048
  23. PREVACID [Concomitant]
     Dosage: 30 MG, QD
     Route: 048
  24. PENICILLIN ^GRUNENTHAL^ [Concomitant]
  25. DILAUDID [Concomitant]
  26. CLEOCIN HYDROCHLORIDE [Concomitant]
  27. LASIX [Concomitant]
     Dosage: 20 MG, QD
     Route: 048
  28. BEXTRA [Concomitant]
  29. BIAXIN [Concomitant]
     Dosage: 500 MG, UNK
  30. ATENOLOL [Concomitant]
     Route: 048
  31. M.V.I. [Concomitant]
  32. HEPARIN LOCK-FLUSH [Concomitant]
  33. PRILOSEC [Concomitant]
     Dosage: 20 MG, QD
     Route: 048
  34. ASPIRIN [Concomitant]
  35. ASPIRIN [Concomitant]
  36. FLECTOR [Concomitant]
     Dosage: 1.3 %, QD
     Route: 062
  37. SERTRALINE HYDROCHLORIDE [Concomitant]
     Dosage: 100 MG, UNK
     Route: 048
  38. KETOCONAZOLE [Concomitant]
     Dosage: 200 MG, UNK
     Route: 048
  39. ZYRTEC [Concomitant]
     Dosage: 10 MG, UNK
     Route: 048
  40. DOXAZOSIN MESYLATE [Concomitant]
     Dosage: 4 MG, UNK
     Route: 048
  41. NABUMETONE [Concomitant]
     Dosage: 750 MG, UNK
     Route: 048
  42. ZELNORM                                 /CAN/ [Concomitant]
  43. MAGIC MOUTHWASH [Concomitant]
  44. MOBIC [Concomitant]
     Dosage: 7.5 MG, BID
     Route: 048
  45. PROTONIX [Concomitant]
  46. COUMADIN [Concomitant]
  47. ACETAMINOPHEN AND HYDROCODONE BITARTRATE [Concomitant]
     Dosage: 5 MG, PRN
     Route: 048
  48. MELOXICAM [Concomitant]
     Dosage: 15 MG, UNK
     Route: 048
  49. ZELNORM                                 /USA/ [Concomitant]
     Dosage: 6 MG, UNK
     Route: 048
  50. REGLAN [Concomitant]
  51. ASCORBIC ACID [Concomitant]
  52. FLOXIN ^DAIICHI^ [Concomitant]
     Dosage: 300 MG, UNK
  53. TRIAMCINOLONE [Concomitant]
     Dosage: 0.1 %, UNK
     Route: 061
  54. PENTOXIFYLLINE [Concomitant]
     Dosage: 400 MG, UNK
     Route: 048
  55. CEFACLOR [Concomitant]
     Dosage: 500 MG, UNK
     Route: 048
  56. KEFLEX [Concomitant]
  57. PROTONIX [Concomitant]
  58. INVANZ [Concomitant]
     Dosage: 1000 MG, UNK
     Route: 042
  59. PREDNISONE [Concomitant]
     Dosage: 5 MG, UNK
  60. NEXIUM [Concomitant]
  61. OMEPRAZOLE [Concomitant]
     Dosage: 20 MG, BID
     Route: 048
  62. COLACE [Concomitant]
  63. CARDURA                                 /IRE/ [Concomitant]
  64. ZOMETA [Suspect]
     Indication: MULTIPLE MYELOMA
     Dates: start: 20030519, end: 20050321
  65. LORTAB [Concomitant]
  66. PERIDEX [Concomitant]
  67. TRENTAL ^ALBERT-ROUSSEL^ [Concomitant]
     Indication: TRISMUS
  68. HYDROMORPHONE [Concomitant]
  69. DEMEROL [Concomitant]
  70. VERSED [Concomitant]
  71. GENTAMICIN [Concomitant]
     Dosage: 0.1 %, UNK
     Route: 061

REACTIONS (100)
  - WOUND INFECTION STAPHYLOCOCCAL [None]
  - OSTEONECROSIS OF JAW [None]
  - INFECTION [None]
  - ANXIETY [None]
  - PAIN IN JAW [None]
  - TONGUE INJURY [None]
  - PLASMACYTOMA [None]
  - SINUSITIS [None]
  - BILE DUCT STONE [None]
  - FIBROSIS [None]
  - ADMINISTRATION SITE INFECTION [None]
  - ARTERIOSCLEROSIS [None]
  - SINUS TACHYCARDIA [None]
  - NEUROPATHY PERIPHERAL [None]
  - HYPERGLYCAEMIA [None]
  - LICHENOID KERATOSIS [None]
  - BONE SWELLING [None]
  - PAROTITIS [None]
  - HEADACHE [None]
  - CHOLELITHIASIS [None]
  - CERVICAL MYELOPATHY [None]
  - HEPATIC ENZYME INCREASED [None]
  - ROTATOR CUFF SYNDROME [None]
  - SUPRAVENTRICULAR EXTRASYSTOLES [None]
  - GASTROOESOPHAGEAL REFLUX DISEASE [None]
  - BENIGN BONE NEOPLASM [None]
  - SCAR [None]
  - TRISMUS [None]
  - HAEMANGIOMA [None]
  - MASS [None]
  - DYSPNOEA [None]
  - INFLAMMATION [None]
  - BLOOD CHOLESTEROL INCREASED [None]
  - SCLERODERMA [None]
  - TOOTH ABSCESS [None]
  - BONE DISORDER [None]
  - TOOTHACHE [None]
  - HEPATOMEGALY [None]
  - HICCUPS [None]
  - PROSTATIC SPECIFIC ANTIGEN INCREASED [None]
  - HYPOAESTHESIA ORAL [None]
  - SINUS BRADYCARDIA [None]
  - CATARACT [None]
  - GRANULOMA [None]
  - HYPOKALAEMIA [None]
  - ANGIOFIBROMA [None]
  - DEATH [None]
  - PAIN [None]
  - INJURY [None]
  - EMOTIONAL DISTRESS [None]
  - SPINAL OSTEOARTHRITIS [None]
  - PURULENT DISCHARGE [None]
  - CHEST PAIN [None]
  - OXYGEN SATURATION DECREASED [None]
  - SOMNOLENCE [None]
  - EROSIVE OESOPHAGITIS [None]
  - PARAESTHESIA ORAL [None]
  - OSTEOARTHRITIS [None]
  - LOOSE BODY IN JOINT [None]
  - CARTILAGE ATROPHY [None]
  - CHRONIC SINUSITIS [None]
  - MUSCLE TIGHTNESS [None]
  - RENAL CYST [None]
  - INTERVERTEBRAL DISC DEGENERATION [None]
  - BONE FRAGMENTATION [None]
  - EXOSTOSIS [None]
  - ATELECTASIS [None]
  - NAUSEA [None]
  - OESOPHAGEAL ULCER [None]
  - VASCULITIS [None]
  - NECROSIS [None]
  - ABDOMINAL PAIN [None]
  - JAUNDICE CHOLESTATIC [None]
  - BACK PAIN [None]
  - PHYSICAL DISABILITY [None]
  - FISTULA DISCHARGE [None]
  - DENTAL CARIES [None]
  - INDURATION [None]
  - LIPASE INCREASED [None]
  - MOUTH ULCERATION [None]
  - BONE MARROW RETICULIN FIBROSIS [None]
  - CARDIAC FAILURE CONGESTIVE [None]
  - HYPOXIA [None]
  - HAEMORRHOIDS [None]
  - TOOTH EROSION [None]
  - CARDIOMEGALY [None]
  - MENTAL STATUS CHANGES [None]
  - JAW DISORDER [None]
  - OSTEORADIONECROSIS [None]
  - PANCREATITIS [None]
  - BLOOD BILIRUBIN INCREASED [None]
  - ANAEMIA [None]
  - CELLULITIS [None]
  - ABDOMINAL PAIN UPPER [None]
  - MARROW HYPERPLASIA [None]
  - HEART VALVE INCOMPETENCE [None]
  - HYPOAESTHESIA [None]
  - APHAGIA [None]
  - FAT NECROSIS [None]
  - SPINAL DISORDER [None]
